FAERS Safety Report 10049942 (Version 5)
Quarter: 2014Q3

REPORT INFORMATION
  Report Type: Spontaneous
  Country: CA (occurrence: CA)
  Receive Date: 20140401
  Receipt Date: 20140917
  Transmission Date: 20150326
  Serious: Yes (Death, Hospitalization, Other)
  Sender: FDA-Public Use
  Company Number: CA-BAXTER-2014BAX015160

PATIENT
  Age: 71 Year
  Sex: Male

DRUGS (4)
  1. DIANEAL W/ DEXTROSE 1.5% [Suspect]
     Active Substance: CALCIUM CHLORIDE\DEXTROSE\MAGNESIUM CHLORIDE\SODIUM CHLORIDE\SODIUM LACTATE
     Indication: DIABETIC NEPHROPATHY
     Route: 033
     Dates: start: 201208
  2. DIANEAL W/ DEXTROSE 2.5% [Suspect]
     Active Substance: CALCIUM CHLORIDE\DEXTROSE\MAGNESIUM CHLORIDE\SODIUM CHLORIDE\SODIUM LACTATE
     Indication: DIABETIC NEPHROPATHY
     Route: 033
  3. DIANEAL PD4 SOLUTION WITH 4.25% DEXTROSE AND 2.5 MEQ/L CALCIUM [Suspect]
     Active Substance: CALCIUM CHLORIDE\DEXTROSE\MAGNESIUM CHLORIDE\SODIUM CHLORIDE\SODIUM LACTATE
     Indication: DIABETIC END STAGE RENAL DISEASE
     Route: 033
  4. EXTRANEAL [Suspect]
     Active Substance: CALCIUM CHLORIDE\ICODEXTRIN\MAGNESIUM CHLORIDE\SODIUM CHLORIDE\SODIUM LACTATE
     Indication: DIABETIC NEPHROPATHY
     Route: 033
     Dates: start: 201208

REACTIONS (6)
  - Cardiac disorder [Recovered/Resolved]
  - Oncologic complication [Fatal]
  - Coronary artery occlusion [Recovered/Resolved]
  - Lung neoplasm malignant [Fatal]
  - Myocardial infarction [Recovered/Resolved]
  - Cardiac failure congestive [Not Recovered/Not Resolved]

NARRATIVE: CASE EVENT DATE: 20140317
